FAERS Safety Report 10991179 (Version 3)
Quarter: 2015Q2

REPORT INFORMATION
  Report Type: Report from Study
  Country: JP (occurrence: JP)
  Receive Date: 20150406
  Receipt Date: 20150626
  Transmission Date: 20150821
  Serious: Yes (Hospitalization)
  Sender: FDA-Public Use
  Company Number: JP-AMGEN-JPNCT2015029978

PATIENT
  Age: 72 Year
  Sex: Male
  Weight: 46.6 kg

DRUGS (26)
  1. CARFILZOMIB [Suspect]
     Active Substance: CARFILZOMIB
     Indication: PLASMA CELL MYELOMA
     Dosage: 36 MG/M2, PER CHEMO REGIM
     Route: 042
     Dates: start: 20141111
  2. MELPHALAN [Suspect]
     Active Substance: MELPHALAN
     Indication: PLASMA CELL MYELOMA
     Dosage: 12 MG/M2, PER CHEMO REGIM
     Route: 048
     Dates: start: 20141111
  3. MAGNESIUM OXIDE. [Concomitant]
     Active Substance: MAGNESIUM OXIDE
     Indication: CONSTIPATION
     Dosage: 330 MG, TID
     Route: 048
     Dates: start: 20141128
  4. MYTEAR                             /00629201/ [Concomitant]
     Indication: DRY EYE
     Dosage: UNK UNK, AS NECESSARY
     Route: 047
     Dates: start: 20121109
  5. GRANISETRON [Concomitant]
     Active Substance: GRANISETRON
     Indication: PROPHYLAXIS OF NAUSEA AND VOMITING
     Dosage: 3 MG, QD
     Route: 042
     Dates: start: 20150325, end: 20150326
  6. VALTREX [Concomitant]
     Active Substance: VALACYCLOVIR HYDROCHLORIDE
     Indication: ANTIVIRAL PROPHYLAXIS
     Dosage: 500 MG, QD
     Route: 048
     Dates: start: 20141111
  7. TRAMAL [Concomitant]
     Active Substance: TRAMADOL
     Indication: BACK PAIN
     Dosage: 25 MG, AS NECESSARY
     Route: 048
     Dates: start: 20150212
  8. ZOLEDRONIC ACID [Concomitant]
     Active Substance: ZOLEDRONIC ACID
     Indication: ANALGESIC THERAPY
     Dosage: 3.3 MG, QMO
     Route: 042
     Dates: start: 20141028
  9. TAKEPRON [Concomitant]
     Active Substance: LANSOPRAZOLE
     Indication: PROPHYLAXIS
     Dosage: 15 MG, QD
     Route: 048
     Dates: start: 20141030
  10. KARY UNI                           /00528801/ [Concomitant]
     Active Substance: PIRENOXINE
     Indication: CATARACT
     Dosage: UNK UNK, QID
     Route: 047
     Dates: start: 20121109
  11. HIRUDOID                           /00723701/ [Concomitant]
     Indication: DRY SKIN
     Dosage: UNK UNK, AS NECESSARY
     Route: 061
     Dates: start: 20150318
  12. LANTUS [Concomitant]
     Active Substance: INSULIN GLARGINE
     Indication: DIABETES MELLITUS
     Dosage: 3 IU, QD
     Route: 058
     Dates: start: 20150319, end: 20150321
  13. KLARICID                           /00984601/ [Concomitant]
     Active Substance: CLARITHROMYCIN
     Indication: BRONCHIECTASIS
     Dosage: 200 MG, BID
     Route: 048
     Dates: start: 20141021
  14. POPIYODON [Concomitant]
     Indication: INFECTION PROPHYLAXIS
  15. FUROSEMIDE. [Concomitant]
     Active Substance: FUROSEMIDE
     Indication: PROPHYLAXIS
     Dosage: 20 MG, QD
     Route: 048
     Dates: start: 20150318, end: 20150320
  16. POPIYODON [Concomitant]
     Indication: PHARYNGITIS
     Dosage: UNK UNK, AS NECESSARY
     Route: 050
     Dates: start: 20141117
  17. SENNOSIDE                          /00571901/ [Concomitant]
     Active Substance: SENNOSIDES A AND B
     Indication: CONSTIPATION
     Dosage: 12 MG, AS NECESSARY
     Route: 048
     Dates: start: 20141128
  18. PANTETHINE [Concomitant]
     Active Substance: PANTETHINE
     Indication: CONSTIPATION
     Dosage: 1 G, TID
     Route: 048
     Dates: start: 20141202
  19. HYALEIN MINI [Concomitant]
     Indication: DRY EYE
     Dosage: UNK UNK, AS NECESSARY
     Route: 031
     Dates: start: 20150127
  20. PREDNISONE. [Suspect]
     Active Substance: PREDNISONE
     Indication: PLASMA CELL MYELOMA
     Dosage: 85 MG, PER CHEMO REGIM
     Route: 048
     Dates: start: 20141111
  21. SULFAMETHOXAZOLE AND TRIMETHOPRIM [Concomitant]
     Active Substance: SULFAMETHOXAZOLE\TRIMETHOPRIM
     Indication: INFECTION PROPHYLAXIS
     Dosage: 1 DF, QD
     Route: 048
     Dates: start: 20141023
  22. HUMALOG [Concomitant]
     Active Substance: INSULIN LISPRO
     Indication: DIABETES MELLITUS
     Dosage: 12 IU, QD
     Route: 058
     Dates: start: 20141211
  23. HUMALOG [Concomitant]
     Active Substance: INSULIN LISPRO
     Indication: HYPERGLYCAEMIA
  24. SELTOUCH [Concomitant]
     Active Substance: FELBINAC
     Indication: MYALGIA
     Dosage: 70 MG, BID
     Route: 061
     Dates: start: 20141224
  25. LOXOPROFEN SODIUM [Concomitant]
     Active Substance: LOXOPROFEN SODIUM
     Indication: BACK PAIN
     Dosage: 60 MG, AS NECESSARY
     Route: 048
     Dates: start: 20150212
  26. LANTUS [Concomitant]
     Active Substance: INSULIN GLARGINE
     Indication: HYPERGLYCAEMIA

REACTIONS (1)
  - Upper respiratory tract inflammation [Recovered/Resolved]

NARRATIVE: CASE EVENT DATE: 20150326
